FAERS Safety Report 4934339-8 (Version None)
Quarter: 2006Q1

REPORT INFORMATION
  Report Type: 
  Country: None (occurrence: None)
  Receive Date: 20060307
  Receipt Date: 20050328
  Transmission Date: 20060701
  Serious: No
  Sender: FDA-Public Use
  Company Number: US-BRISTOL-MYERS SQUIBB COMPANY-12912234

PATIENT
  Age: 45 Year
  Sex: Female
  Weight: 52 kg

DRUGS (1)
  1. VAGISTAT-1 [Suspect]
     Indication: VULVOVAGINAL MYCOTIC INFECTION
     Dates: start: 20050326, end: 20050326

REACTIONS (1)
  - PRURITUS [None]
